APPROVED DRUG PRODUCT: AMINOCAPROIC ACID
Active Ingredient: AMINOCAPROIC ACID
Strength: 0.25GM/ML
Dosage Form/Route: SOLUTION;ORAL
Application: A214140 | Product #001 | TE Code: AA
Applicant: PHARMOBEDIENT CONSULTING LLC
Approved: Jan 26, 2021 | RLD: No | RS: No | Type: RX